FAERS Safety Report 5397642-6 (Version None)
Quarter: 2007Q3

REPORT INFORMATION
  Report Type: 
  Country: None (occurrence: None)
  Receive Date: 20070723
  Receipt Date: 20070723
  Transmission Date: 20080115
  Serious: No
  Sender: FDA-Public Use
  Company Number: None

PATIENT
  Age: 57 Year
  Sex: Female
  Weight: 71.2147 kg

DRUGS (2)
  1. TYLENOL (CAPLET) [Suspect]
     Indication: HEADACHE
     Dosage: 1  ONCE  PO
     Route: 048
     Dates: start: 20070716, end: 20070716
  2. TYLENOL (CAPLET) [Suspect]
     Dosage: 2 DAILY PO
     Route: 048

REACTIONS (2)
  - NAUSEA [None]
  - VOMITING [None]
